FAERS Safety Report 14424934 (Version 3)
Quarter: 2018Q2

REPORT INFORMATION
  Report Type: Spontaneous
  Country: JP (occurrence: JP)
  Receive Date: 20180123
  Receipt Date: 20180529
  Transmission Date: 20180711
  Serious: Yes (Death, Hospitalization)
  Sender: FDA-Public Use
  Company Number: JP-ORPHAN EUROPE-2040615

PATIENT
  Age: 38 Year
  Sex: Male

DRUGS (6)
  1. TENORMIN [Concomitant]
     Active Substance: ATENOLOL
     Route: 048
  2. TEARBALANCE [Concomitant]
     Active Substance: HYALURONATE SODIUM
     Route: 047
  3. INHIBACE [Concomitant]
     Active Substance: CILAZAPRIL ANHYDROUS
     Route: 048
  4. CYSTADANE [Suspect]
     Active Substance: BETAINE
     Indication: CYSTATHIONINE BETA-SYNTHASE DEFICIENCY
     Route: 048
     Dates: start: 20141121, end: 20171222
  5. CYSTADANE [Suspect]
     Active Substance: BETAINE
     Route: 048
     Dates: start: 20171223, end: 20171223
  6. AMLODIPINE [Concomitant]
     Active Substance: AMLODIPINE BESYLATE
     Route: 048

REACTIONS (15)
  - Hyperhidrosis [Unknown]
  - Hypertension [Unknown]
  - Cardiac arrest [Fatal]
  - Mydriasis [Unknown]
  - Salivary hypersecretion [Unknown]
  - Urine output decreased [Unknown]
  - Thalamus haemorrhage [Fatal]
  - Dyspnoea [Unknown]
  - Blood pressure decreased [Unknown]
  - Respiratory arrest [Fatal]
  - Balance disorder [Unknown]
  - Depressed level of consciousness [Unknown]
  - Automatism [Unknown]
  - Pyrexia [Unknown]
  - Blood pressure decreased [Unknown]

NARRATIVE: CASE EVENT DATE: 20171214
